APPROVED DRUG PRODUCT: FAMOTIDINE, CALCIUM CARBONATE, AND MAGNESIUM HYDROXIDE
Active Ingredient: CALCIUM CARBONATE; FAMOTIDINE; MAGNESIUM HYDROXIDE
Strength: 800MG;10MG;165MG
Dosage Form/Route: TABLET, CHEWABLE;ORAL
Application: A077355 | Product #001
Applicant: PERRIGO R AND D CO
Approved: Feb 6, 2008 | RLD: No | RS: No | Type: OTC